FAERS Safety Report 7035889-3 (Version None)
Quarter: 2010Q4

REPORT INFORMATION
  Report Type: 
  Country: None (occurrence: None)
  Receive Date: 20101008
  Receipt Date: 20101001
  Transmission Date: 20110411
  Serious: Yes (Death, Other)
  Sender: FDA-Public Use
  Company Number: US-AMGEN-QUU437376

PATIENT
  Sex: Female

DRUGS (3)
  1. NPLATE [Suspect]
     Indication: IDIOPATHIC THROMBOCYTOPENIC PURPURA
     Dates: start: 20090730
  2. CORTICOSTEROIDS [Concomitant]
     Dates: start: 20090708
  3. PREDNISONE [Concomitant]

REACTIONS (2)
  - CARDIOVASCULAR DISORDER [None]
  - MULTIMORBIDITY [None]
